FAERS Safety Report 10408958 (Version 2)
Quarter: 2014Q4

REPORT INFORMATION
  Report Type: Spontaneous
  Country: JP (occurrence: JP)
  Receive Date: 20140826
  Receipt Date: 20141002
  Transmission Date: 20150528
  Serious: Yes (Other)
  Sender: FDA-Public Use
  Company Number: JP-ELI_LILLY_AND_COMPANY-JP201408007967

PATIENT
  Age: 77 Year
  Sex: Female

DRUGS (2)
  1. NEDAPLATIN [Concomitant]
     Active Substance: NEDAPLATIN
     Indication: URETERIC CANCER
     Dosage: 60 MG/M2, OTHER
     Dates: start: 201104
  2. GEMZAR [Suspect]
     Active Substance: GEMCITABINE HYDROCHLORIDE
     Indication: URETERIC CANCER
     Dosage: 800 MG/M2, OTHER
     Route: 042
     Dates: start: 201104

REACTIONS (4)
  - Anaemia [Recovered/Resolved]
  - Platelet count decreased [Recovered/Resolved]
  - Large intestinal haemorrhage [Unknown]
  - Neutrophil count decreased [Recovered/Resolved]
